FAERS Safety Report 22532685 (Version 1)
Quarter: 2023Q2

REPORT INFORMATION
  Report Type: Report from Study
  Country: NL (occurrence: NL)
  Receive Date: 20230607
  Receipt Date: 20230607
  Transmission Date: 20230721
  Serious: Yes (Other)
  Sender: FDA-Public Use
  Company Number: NL-002147023-NVSC2020NL107371

PATIENT
  Sex: Male
  Weight: 114.2 kg

DRUGS (13)
  1. ACLASTA [Suspect]
     Active Substance: ZOLEDRONIC ACID
     Indication: Product used for unknown indication
     Dosage: 5 MG, Q12MO
     Route: 041
  2. DOXAZOSIN [Concomitant]
     Active Substance: DOXAZOSIN MESYLATE
     Indication: Hypertension
     Dosage: 4 MG, QD
     Route: 065
     Dates: start: 20180628
  3. VERAPAMIL [Concomitant]
     Active Substance: VERAPAMIL HYDROCHLORIDE
     Indication: Hypertension
     Dosage: 40 MG, BID
     Route: 065
     Dates: start: 20180521
  4. ELIQUIS [Concomitant]
     Active Substance: APIXABAN
     Indication: Myocardial infarction
     Dosage: UNK, BID
     Route: 065
     Dates: start: 20180828
  5. PANTOPRAZOLE [Concomitant]
     Active Substance: PANTOPRAZOLE
     Indication: Product used for unknown indication
     Dosage: 40 MG, QD
     Route: 065
     Dates: start: 20180519
  6. METFORMIN [Concomitant]
     Active Substance: METFORMIN HYDROCHLORIDE
     Indication: Type 2 diabetes mellitus
     Dosage: 500 MG, QD
     Route: 065
     Dates: start: 20180831
  7. ATORVASTATIN [Concomitant]
     Active Substance: ATORVASTATIN
     Indication: Hypercholesterolaemia
     Dosage: 40 MG, QD
     Route: 065
     Dates: start: 20180519
  8. CHOLECALCIFEROL [Concomitant]
     Active Substance: CHOLECALCIFEROL
     Indication: Vitamin D deficiency
     Dosage: 800 IU, QD
     Route: 065
     Dates: start: 20200311
  9. FENTANYL [Concomitant]
     Active Substance: FENTANYL
     Indication: Pain
     Dosage: 12 UG/HR 1X PER 3 DAYS 1 PIECE
     Route: 065
     Dates: start: 20190119
  10. LACTULOSE [Concomitant]
     Active Substance: LACTULOSE
     Indication: Defaecation disorder
     Dosage: 15 ML, QD
     Route: 065
     Dates: start: 20181008
  11. ACETAMINOPHEN [Concomitant]
     Active Substance: ACETAMINOPHEN
     Indication: Analgesic therapy
     Dosage: 500 MG (3X DAILY 2 PIECES)
     Route: 065
  12. NITROGLYCERIN [Concomitant]
     Active Substance: NITROGLYCERIN
     Indication: Angina pectoris
     Dosage: 0.4 MG WHEN NECESSARY
     Route: 065
     Dates: start: 20181008
  13. TEMAZEPAM [Concomitant]
     Active Substance: TEMAZEPAM
     Indication: Sleep disorder
     Dosage: 20 MG, QD
     Route: 065
     Dates: start: 20180531

REACTIONS (4)
  - Stevens-Johnson syndrome [Recovering/Resolving]
  - Psoriasis [Recovering/Resolving]
  - Skin exfoliation [Recovering/Resolving]
  - Scab [Recovering/Resolving]
